FAERS Safety Report 6268873-8 (Version None)
Quarter: 2009Q3

REPORT INFORMATION
  Report Type: 
  Country: None (occurrence: None)
  Receive Date: 20090715
  Receipt Date: 20090706
  Transmission Date: 20100115
  Serious: Yes (Hospitalization, Other)
  Sender: FDA-Public Use
  Company Number: PHHY2009JP23023

PATIENT
  Sex: Female
  Weight: 49 kg

DRUGS (6)
  1. NEORAL [Suspect]
     Indication: MYASTHENIA GRAVIS
     Dosage: 150 MG/DAY
     Route: 048
     Dates: start: 20070614
  2. NEORAL [Suspect]
     Dosage: 200 MG/DAY
     Route: 048
     Dates: start: 20080112, end: 20080704
  3. PREDNISOLONE [Suspect]
     Indication: MYASTHENIA GRAVIS
     Dosage: UNK
     Route: 048
     Dates: start: 20071117
  4. MESTINON [Concomitant]
     Indication: MYASTHENIA GRAVIS
     Dosage: UNK
     Route: 048
     Dates: start: 20070510
  5. METHYLPREDNISOLONE ACETATE [Concomitant]
     Dosage: 1000 MG, UNK
     Route: 042
     Dates: start: 20080522, end: 20080607
  6. NORVASC [Concomitant]
     Dosage: UNK

REACTIONS (3)
  - DIABETES MELLITUS [None]
  - DRUG INEFFECTIVE [None]
  - MYASTHENIA GRAVIS [None]
